FAERS Safety Report 17520760 (Version 1)
Quarter: 2020Q1

REPORT INFORMATION
  Report Type: Spontaneous
  Country: US (occurrence: US)
  Receive Date: 20200310
  Receipt Date: 20200310
  Transmission Date: 20200409
  Serious: No
  Sender: FDA-Public Use
  Company Number: US-PFIZER INC-2020103394

PATIENT
  Age: 65 Year
  Sex: Male
  Weight: 65.76 kg

DRUGS (2)
  1. IBRANCE [Suspect]
     Active Substance: PALBOCICLIB
     Indication: BREAST CANCER
     Dosage: 125 MG, CYCLIC,1 DAILY FOR 21 DAYS
     Route: 048
     Dates: start: 20200221
  2. PROCHLORPERAZINE MALEATE. [Concomitant]
     Active Substance: PROCHLORPERAZINE MALEATE
     Dosage: 10 MG, UNK

REACTIONS (4)
  - Eating disorder [Unknown]
  - Malaise [Unknown]
  - Chills [Unknown]
  - Constipation [Unknown]
